FAERS Safety Report 25760203 (Version 1)
Quarter: 2025Q3

REPORT INFORMATION
  Report Type: Spontaneous
  Country: US (occurrence: None)
  Receive Date: 20250903
  Receipt Date: 20250903
  Transmission Date: 20251021
  Serious: Yes (Hospitalization)
  Sender: FDA-CTU
  Company Number: None

PATIENT
  Age: 60 Year
  Sex: Female

DRUGS (2)
  1. AUBAGIO [Suspect]
     Active Substance: TERIFLUNOMIDE
     Dosage: FREQUENCY : DAILY;?
  2. LIVALO [Suspect]
     Active Substance: PITAVASTATIN CALCIUM

REACTIONS (3)
  - Vertigo [None]
  - Muscle spasms [None]
  - Drug interaction [None]
